FAERS Safety Report 6407873-1 (Version None)
Quarter: 2009Q4

REPORT INFORMATION
  Report Type: 
  Country: None (occurrence: None)
  Receive Date: 20091020
  Receipt Date: 20091013
  Transmission Date: 20100525
  Serious: Yes (Hospitalization)
  Sender: FDA-Public Use
  Company Number: CA-GILEAD-2009-0024797

PATIENT
  Sex: Male

DRUGS (9)
  1. ATRIPLA [Suspect]
     Indication: HIV INFECTION
     Dates: start: 20080701
  2. PREDNISONE TAB [Concomitant]
  3. THEOPHYLLINE [Concomitant]
  4. ADVAIR DISKUS 100/50 [Concomitant]
  5. VENTOLIN [Concomitant]
  6. ATROVENT [Concomitant]
  7. SEPTRA [Concomitant]
     Indication: ANTIFUNGAL PROPHYLAXIS
  8. FUROSEMIDE [Concomitant]
  9. OXYGEN [Concomitant]

REACTIONS (1)
  - RESPIRATORY DISORDER [None]
